FAERS Safety Report 9315846 (Version 3)
Quarter: 2014Q3

REPORT INFORMATION
  Report Type: Spontaneous
  Country: US (occurrence: US)
  Receive Date: 20130529
  Receipt Date: 20140930
  Transmission Date: 20150326
  Serious: Yes (Hospitalization)
  Sender: FDA-Public Use
  Company Number: US-BRISTOL-MYERS SQUIBB COMPANY-18915520

PATIENT
  Age: 59 Year
  Sex: Male

DRUGS (2)
  1. ABILIFY [Suspect]
     Active Substance: ARIPIPRAZOLE
     Route: 065
  2. HALDOL [Concomitant]
     Active Substance: HALOPERIDOL

REACTIONS (15)
  - Product quality issue [Unknown]
  - Tardive dyskinesia [Recovering/Resolving]
  - Pain [Unknown]
  - Dyskinesia [Unknown]
  - Eye disorder [Unknown]
  - Vision blurred [Unknown]
  - Parkinsonism [Recovered/Resolved]
  - Fall [Unknown]
  - Dystonia [Unknown]
  - Dizziness [Unknown]
  - Cerebrovascular accident [Unknown]
  - Musculoskeletal stiffness [Unknown]
  - Tongue biting [Unknown]
  - Somnolence [Unknown]
  - Tremor [Unknown]
